FAERS Safety Report 6171729-2 (Version None)
Quarter: 2009Q2

REPORT INFORMATION
  Report Type: 
  Country: None (occurrence: None)
  Receive Date: 20090429
  Receipt Date: 20090424
  Transmission Date: 20091009
  Serious: Yes (Hospitalization)
  Sender: FDA-Public Use
  Company Number: B0571678A

PATIENT
  Age: 78 Year
  Sex: Male

DRUGS (2)
  1. PAXIL [Suspect]
     Indication: DEPRESSION
     Dosage: 20MG PER DAY
     Route: 048
     Dates: start: 20080901, end: 20090414
  2. CELTECT [Concomitant]
     Route: 048
     Dates: start: 20090414, end: 20090414

REACTIONS (1)
  - ALTERED STATE OF CONSCIOUSNESS [None]
